FAERS Safety Report 9786707 (Version 1)
Quarter: 2013Q4

REPORT INFORMATION
  Report Type: Spontaneous
  Country: FR (occurrence: FR)
  Receive Date: 20131227
  Receipt Date: 20131227
  Transmission Date: 20140711
  Serious: Yes (Other)
  Sender: FDA-Public Use
  Company Number: FR-MYLANLABS-2013S1028305

PATIENT
  Age: 62 Year
  Sex: Male

DRUGS (1)
  1. ALLOPURINOL [Suspect]
     Route: 065

REACTIONS (3)
  - Drug reaction with eosinophilia and systemic symptoms [Recovering/Resolving]
  - Hyperthyroidism [Unknown]
  - Anti-thyroid antibody positive [Unknown]
